FAERS Safety Report 25250347 (Version 2)
Quarter: 2025Q2

REPORT INFORMATION
  Report Type: Spontaneous
  Country: FI (occurrence: FI)
  Receive Date: 20250429
  Receipt Date: 20250509
  Transmission Date: 20250716
  Serious: Yes (Hospitalization, Other)
  Sender: TEVA
  Company Number: FI-TEVA-VS-3325125

PATIENT
  Age: 92 Year
  Sex: Female

DRUGS (3)
  1. LOSARTAN POTASSIUM [Suspect]
     Active Substance: LOSARTAN POTASSIUM
     Indication: Product used for unknown indication
     Dosage: MORNING AND EVENING
     Route: 048
     Dates: start: 202411
  2. FELODIPINE [Suspect]
     Active Substance: FELODIPINE
     Indication: Product used for unknown indication
     Route: 048
     Dates: end: 202411
  3. LEVOTHYROXINE [Concomitant]
     Active Substance: LEVOTHYROXINE
     Indication: Product used for unknown indication
     Dosage: MORNING

REACTIONS (18)
  - Blood pressure increased [Recovering/Resolving]
  - Dizziness [Not Recovered/Not Resolved]
  - Muscle spasms [Not Recovered/Not Resolved]
  - Peripheral swelling [Recovered/Resolved]
  - Gait inability [Unknown]
  - Arthralgia [Unknown]
  - Nausea [Not Recovered/Not Resolved]
  - Near death experience [Unknown]
  - Fall [Unknown]
  - Dyskinesia [Unknown]
  - Malaise [Unknown]
  - Pain in extremity [Unknown]
  - Myalgia [Unknown]
  - Vascular pain [Unknown]
  - Paraesthesia [Unknown]
  - Muscle twitching [Unknown]
  - Muscular weakness [Unknown]
  - Joint swelling [Recovered/Resolved]

NARRATIVE: CASE EVENT DATE: 20241201
